FAERS Safety Report 5524621-8 (Version None)
Quarter: 2007Q4

REPORT INFORMATION
  Report Type: 
  Country: None (occurrence: None)
  Receive Date: 20071123
  Receipt Date: 20071113
  Transmission Date: 20080405
  Serious: Yes (Other)
  Sender: FDA-Public Use
  Company Number: US-ROCHE-525715

PATIENT
  Age: 50 Year
  Sex: Male

DRUGS (7)
  1. CELLCEPT [Suspect]
     Indication: IMMUNOSUPPRESSION
     Route: 065
  2. PROCRIT [Suspect]
     Route: 058
     Dates: start: 20070101
  3. PROCRIT [Suspect]
     Route: 058
     Dates: start: 20070201
  4. PROCRIT [Suspect]
     Route: 058
     Dates: start: 20070716
  5. PROCRIT [Suspect]
     Route: 058
     Dates: start: 20070827, end: 20070915
  6. PREDNISONE TAB [Concomitant]
  7. SIROLIMUS [Concomitant]

REACTIONS (1)
  - NO THERAPEUTIC RESPONSE [None]
